FAERS Safety Report 15251097 (Version 1)
Quarter: 2018Q3

REPORT INFORMATION
  Report Type: Spontaneous
  Country: US (occurrence: US)
  Receive Date: 20180807
  Receipt Date: 20180807
  Transmission Date: 20181010
  Serious: Yes (Hospitalization, Other)
  Sender: FDA-Public Use
  Company Number: US-SEBELA IRELAND LIMITED-2018SEB00201

PATIENT
  Age: 37 Year
  Sex: Male

DRUGS (11)
  1. IMURAN [Suspect]
     Active Substance: AZATHIOPRINE
     Dosage: 100 MG, 1X/DAY
  2. OCALIVA [Suspect]
     Active Substance: OBETICHOLIC ACID
     Indication: PRIMARY BILIARY CHOLANGITIS
     Dosage: 5 MG, 1X/DAY
     Route: 048
     Dates: start: 20170611, end: 20180109
  3. AMLODIPINE [Concomitant]
     Active Substance: AMLODIPINE BESYLATE
  4. URSODIOL. [Concomitant]
     Active Substance: URSODIOL
     Dosage: UNK
     Dates: start: 201203
  5. PREDNISONE. [Suspect]
     Active Substance: PREDNISONE
     Dosage: 10 MG, 1X/DAY
     Dates: start: 201203
  6. PROTONIX [Concomitant]
     Active Substance: PANTOPRAZOLE SODIUM
  7. DUONEB [Concomitant]
     Active Substance: ALBUTEROL SULFATE\IPRATROPIUM BROMIDE
  8. OCALIVA [Suspect]
     Active Substance: OBETICHOLIC ACID
     Dosage: 10 MG, 1X/DAY
     Route: 048
     Dates: start: 20170401, end: 20170515
  9. OCALIVA [Suspect]
     Active Substance: OBETICHOLIC ACID
     Indication: AUTOIMMUNE HEPATITIS
  10. OCALIVA [Suspect]
     Active Substance: OBETICHOLIC ACID
     Indication: VANISHING BILE DUCT SYNDROME
     Dosage: 5 MG, 1X/DAY
     Route: 048
     Dates: start: 20161214, end: 20170401
  11. RITUXIMAB. [Suspect]
     Active Substance: RITUXIMAB
     Indication: RHEUMATOID ARTHRITIS
     Dosage: UNK
     Dates: start: 201205, end: 201711

REACTIONS (12)
  - Pruritus [Unknown]
  - Rash [Unknown]
  - Parvovirus B19 infection [Recovered/Resolved]
  - Blood albumin decreased [Recovered/Resolved]
  - Confusional state [Recovered/Resolved]
  - Cytopenia [Recovered/Resolved]
  - Hepatic enzyme increased [Recovered/Resolved]
  - Pyrexia [Unknown]
  - Hepatic encephalopathy [Unknown]
  - Hepatosplenomegaly [Unknown]
  - Anaemia [Recovered/Resolved]
  - Platelet count decreased [Unknown]

NARRATIVE: CASE EVENT DATE: 20170401
